FAERS Safety Report 9956424 (Version 2)
Quarter: 2014Q1

REPORT INFORMATION
  Report Type: Report from Study
  Country: US (occurrence: US)
  Receive Date: 20140304
  Receipt Date: 20140304
  Transmission Date: 20141002
  Serious: No
  Sender: FDA-Public Use
  Company Number: US-ABBVIE-12P-163-0943843-00

PATIENT
  Age: 58 Year
  Sex: Female

DRUGS (13)
  1. HUMIRA [Suspect]
     Indication: PSORIASIS
     Dates: start: 200706, end: 2009
  2. HUMIRA [Suspect]
     Dates: start: 2012
  3. TENORMIN [Concomitant]
     Indication: MITRAL VALVE PROLAPSE
  4. TENORMIN [Concomitant]
     Indication: VENTRICULAR EXTRASYSTOLES
  5. PROZAC [Concomitant]
     Indication: DEPRESSION
  6. LIPITOR [Concomitant]
     Indication: BLOOD CHOLESTEROL INCREASED
  7. VITAMINS [Concomitant]
     Indication: PRODUCT USED FOR UNKNOWN INDICATION
  8. CALCIUM [Concomitant]
     Indication: PRODUCT USED FOR UNKNOWN INDICATION
  9. BABY ASPIRIN [Concomitant]
     Indication: PRODUCT USED FOR UNKNOWN INDICATION
     Dosage: 1 DOSAGE FORM MOST, BUT NOT EVERY DAY
  10. PERCODAN [Concomitant]
     Indication: PAIN
  11. METHOTREXATE [Concomitant]
     Indication: PSORIASIS
  12. FOLIC ACID [Concomitant]
     Indication: PRODUCT USED FOR UNKNOWN INDICATION
  13. FOLIC ACID [Concomitant]

REACTIONS (7)
  - White blood cell count decreased [Unknown]
  - Psoriasis [Not Recovered/Not Resolved]
  - Injection site pain [Unknown]
  - Injection site pain [Not Recovered/Not Resolved]
  - Red blood cell count decreased [Unknown]
  - Device malfunction [Unknown]
  - Incorrect dose administered [Unknown]
